FAERS Safety Report 6168356-X (Version None)
Quarter: 2009Q2

REPORT INFORMATION
  Report Type: 
  Country: None (occurrence: None)
  Receive Date: 20090423
  Receipt Date: 20090407
  Transmission Date: 20091009
  Serious: Yes (Death, Hospitalization)
  Sender: FDA-Public Use
  Company Number: 2005151964

PATIENT
  Age: 76 Year
  Sex: Male
  Weight: 54.8 kg

DRUGS (4)
  1. BENADRYL [Suspect]
     Indication: PREMEDICATION
     Dosage: 50 MG EVERY 3 WEEKS (50 MG) INTRAVENOUS
     Route: 042
     Dates: start: 20051103, end: 20051103
  2. LORAZEPAM [Suspect]
     Indication: PREMEDICATION
     Dosage: 1 MG EVERY 3 WEEKS (1 MG)INTRAVENOUS
     Route: 042
     Dates: start: 20051103, end: 20051103
  3. CARBOPLATIN [Suspect]
     Indication: NON-SMALL CELL LUNG CANCER
     Dosage: AUC 6, ONCE Q3 WKS
     Dates: start: 20061103, end: 20061103
  4. PACLITAXEL [Suspect]
     Indication: NON-SMALL CELL LUNG CANCER
     Dosage: 175 MG/M2 ONCE (175 MG/M2, ), INTRAVENOUS
     Route: 042
     Dates: start: 20051103, end: 20051103

REACTIONS (7)
  - ACUTE RESPIRATORY FAILURE [None]
  - BLOOD PH INCREASED [None]
  - DEPRESSED LEVEL OF CONSCIOUSNESS [None]
  - DISEASE PROGRESSION [None]
  - HYPERCAPNIA [None]
  - LETHARGY [None]
  - RESPIRATORY ACIDOSIS [None]
